FAERS Safety Report 24380999 (Version 2)
Quarter: 2025Q2

REPORT INFORMATION
  Report Type: Report from Study
  Country: US (occurrence: US)
  Receive Date: 20240930
  Receipt Date: 20250530
  Transmission Date: 20250716
  Serious: Yes (Hospitalization, Other)
  Sender: ABBVIE
  Company Number: US-ABBVIE-5939165

PATIENT
  Age: 32 Year
  Sex: Female
  Weight: 101.15 kg

DRUGS (2)
  1. SKYRIZI [Suspect]
     Active Substance: RISANKIZUMAB-RZAA
     Indication: Crohn^s disease
     Route: 058
     Dates: start: 20230515, end: 202504
  2. SKYRIZI [Suspect]
     Active Substance: RISANKIZUMAB-RZAA
     Route: 058
     Dates: start: 20250423

REACTIONS (14)
  - Premature labour [Recovered/Resolved]
  - Hepatic enzyme increased [Recovered/Resolved]
  - Maternal exposure during pregnancy [Unknown]
  - Chest discomfort [Recovered/Resolved]
  - Seizure [Unknown]
  - Nasopharyngitis [Recovered/Resolved]
  - Live birth [Unknown]
  - Feeling hot [Recovered/Resolved]
  - Tonsillitis [Recovered/Resolved]
  - Hypertension [Not Recovered/Not Resolved]
  - Hepatic enzyme increased [Recovered/Resolved]
  - Pre-eclampsia [Not Recovered/Not Resolved]
  - Seizure [Recovered/Resolved]
  - Seizure [Recovered/Resolved]

NARRATIVE: CASE EVENT DATE: 20240601
